FAERS Safety Report 10927375 (Version 1)
Quarter: 2015Q1

REPORT INFORMATION
  Report Type: Spontaneous
  Country: CN (occurrence: CN)
  Receive Date: 20150318
  Receipt Date: 20150318
  Transmission Date: 20150721
  Serious: Yes (Hospitalization)
  Sender: FDA-Public Use
  Company Number: CN-BAXTER-2015BAX013055

PATIENT
  Age: 2 Year
  Sex: Female
  Weight: 14 kg

DRUGS (5)
  1. 0.9% SODIUM CHLORIDE INJECTION [Suspect]
     Active Substance: SODIUM CHLORIDE
     Indication: MEDICATION DILUTION
     Route: 041
     Dates: start: 20140629, end: 20140629
  2. DEXAMETHASONE ACETATE [Suspect]
     Active Substance: DEXAMETHASONE ACETATE
     Indication: ANAPHYLACTIC REACTION
     Route: 041
     Dates: start: 20140628
  3. 5% GLUCOSE  INJECTION [Suspect]
     Active Substance: DEXTROSE
     Indication: MEDICATION DILUTION
     Route: 041
     Dates: start: 20140629, end: 20140629
  4. NEW HOTELLING [Suspect]
     Active Substance: CEFAZOLIN SODIUM
     Indication: INFECTION
     Route: 041
     Dates: start: 20140629, end: 20140629
  5. DEXAMETHASONE ACETATE [Suspect]
     Active Substance: DEXAMETHASONE ACETATE
     Route: 041
     Dates: start: 20140629, end: 20140629

REACTIONS (7)
  - Urticaria [None]
  - Heart rate increased [None]
  - Pyrexia [None]
  - Respiratory rate increased [None]
  - Anaphylactic reaction [Recovered/Resolved]
  - Rash erythematous [None]
  - Rash [None]

NARRATIVE: CASE EVENT DATE: 20140629
